FAERS Safety Report 24713333 (Version 1)
Quarter: 2024Q4

REPORT INFORMATION
  Report Type: Spontaneous
  Country: US (occurrence: US)
  Receive Date: 20241209
  Receipt Date: 20241209
  Transmission Date: 20250115
  Serious: No
  Sender: REGENERON
  Company Number: US-REGENERON PHARMACEUTICALS, INC.-2024-028623

PATIENT
  Sex: Male

DRUGS (1)
  1. EYLEA [Suspect]
     Active Substance: AFLIBERCEPT
     Indication: Neovascular age-related macular degeneration
     Dosage: 2 MG; EVERY 10 WEEKS; IN LEFT EYE FORMULATION: GERRESHEIMER PFS; STRENGTH: 2MG/0.05ML
     Dates: start: 20210720

REACTIONS (1)
  - Exposure to contaminated device [Recovered/Resolved]

NARRATIVE: CASE EVENT DATE: 20240206
